FAERS Safety Report 24035100 (Version 2)
Quarter: 2024Q3

REPORT INFORMATION
  Report Type: Report from Study
  Country: US (occurrence: US)
  Receive Date: 20240701
  Receipt Date: 20240806
  Transmission Date: 20241017
  Serious: Yes (Hospitalization)
  Sender: BAYER
  Company Number: US-BAYER-2024A086190

PATIENT
  Age: 67 Year
  Sex: Male

DRUGS (3)
  1. NUBEQA [Suspect]
     Active Substance: DAROLUTAMIDE
     Indication: Hormone-refractory prostate cancer
     Dosage: 600 MG, BID
     Route: 048
     Dates: start: 20240601
  2. NUBEQA [Suspect]
     Active Substance: DAROLUTAMIDE
     Indication: Hormone-refractory prostate cancer
     Dosage: 600 MG, BID
     Route: 048
  3. NUBEQA [Suspect]
     Active Substance: DAROLUTAMIDE
     Indication: Hormone-refractory prostate cancer
     Dosage: 300 MG, BID
     Route: 048

REACTIONS (8)
  - Blood pressure increased [Unknown]
  - Adverse event [Not Recovered/Not Resolved]
  - Skin warm [Recovered/Resolved]
  - Lymph node pain [Unknown]
  - Blood glucose increased [Unknown]
  - Lymphadenopathy [Unknown]
  - Groin pain [Unknown]
  - Discomfort [Unknown]

NARRATIVE: CASE EVENT DATE: 20240601
